FAERS Safety Report 23482703 (Version 2)
Quarter: 2024Q1

REPORT INFORMATION
  Report Type: Spontaneous
  Country: US (occurrence: US)
  Receive Date: 20240205
  Receipt Date: 20240227
  Transmission Date: 20240409
  Serious: No
  Sender: FDA-Public Use
  Company Number: US-Calliditas-2024CAL00136

PATIENT
  Age: 47 Year
  Sex: Male

DRUGS (3)
  1. TARPEYO [Suspect]
     Active Substance: BUDESONIDE
     Indication: IgA nephropathy
     Dosage: 16 MG (4 MG CAPSULES) ONCE DAILY
     Route: 048
     Dates: start: 20231031
  2. LOSARTAN [Concomitant]
     Active Substance: LOSARTAN
  3. CHOLECALCIFEROL [Concomitant]
     Active Substance: CHOLECALCIFEROL

REACTIONS (2)
  - Intentional underdose [Recovered/Resolved]
  - Fatigue [Not Recovered/Not Resolved]

NARRATIVE: CASE EVENT DATE: 20231215
